FAERS Safety Report 5368283-1 (Version None)
Quarter: 2007Q2

REPORT INFORMATION
  Report Type: 
  Country: None (occurrence: None)
  Receive Date: 20070620
  Receipt Date: 20070613
  Transmission Date: 20071010
  Serious: Yes (Death)
  Sender: FDA-Public Use
  Company Number: 200706IM000222

PATIENT
  Age: 75 Year
  Sex: Male

DRUGS (1)
  1. ACTIMMUNE [Suspect]
     Indication: ALVEOLITIS FIBROSING
     Dosage: 100 UG,  TIW, SUBCUTANEOUS
     Route: 058
     Dates: start: 20040224, end: 20070611

REACTIONS (1)
  - DEATH [None]
